FAERS Safety Report 10588794 (Version 3)
Quarter: 2015Q3

REPORT INFORMATION
  Report Type: Report from Study
  Country: US (occurrence: US)
  Receive Date: 20141117
  Receipt Date: 20150818
  Transmission Date: 20151125
  Serious: No
  Sender: FDA-Public Use
  Company Number: US-GILEAD-2014-0122457

PATIENT
  Age: 39 Year
  Sex: Male

DRUGS (4)
  1. AMBRISENTAN [Suspect]
     Active Substance: AMBRISENTAN
     Indication: TREATMENT NONCOMPLIANCE
  2. AMBRISENTAN [Suspect]
     Active Substance: AMBRISENTAN
     Indication: ALCOHOL ABUSE
     Dosage: 5 MG, QD
     Route: 065
     Dates: start: 20110404
  3. AMBRISENTAN [Suspect]
     Active Substance: AMBRISENTAN
     Indication: PULMONARY HYPERTENSION
  4. AMBRISENTAN [Suspect]
     Active Substance: AMBRISENTAN
     Indication: HEPATIC FAILURE

REACTIONS (3)
  - Cholelithiasis [Unknown]
  - Insomnia [Unknown]
  - Unevaluable event [Unknown]
